FAERS Safety Report 20338211 (Version 8)
Quarter: 2022Q2

REPORT INFORMATION
  Report Type: Spontaneous
  Country: US (occurrence: US)
  Receive Date: 20220115
  Receipt Date: 20220607
  Transmission Date: 20220721
  Serious: No
  Sender: FDA-Public Use
  Company Number: US-BIOGEN-2022BI01085148

PATIENT
  Age: 31 Year
  Sex: Female

DRUGS (2)
  1. TYSABRI [Suspect]
     Active Substance: NATALIZUMAB
     Indication: Multiple sclerosis
     Route: 065
     Dates: start: 20211227
  2. TYSABRI [Suspect]
     Active Substance: NATALIZUMAB
     Dosage: GETS INFUSED EVERY 4-5 WEEKS
     Route: 065

REACTIONS (12)
  - Prescribed underdose [Unknown]
  - COVID-19 [Unknown]
  - Decreased appetite [Unknown]
  - Multiple sclerosis relapse [Unknown]
  - Syncope [Unknown]
  - Autoimmune thyroiditis [Unknown]
  - Migraine [Recovered/Resolved with Sequelae]
  - Pallor [Recovered/Resolved]
  - Urinary tract infection [Unknown]
  - Hepatic enzyme increased [Unknown]
  - Dizziness [Recovered/Resolved with Sequelae]
  - Weight increased [Unknown]

NARRATIVE: CASE EVENT DATE: 20211227
